FAERS Safety Report 5629238-2 (Version None)
Quarter: 2008Q1

REPORT INFORMATION
  Report Type: 
  Country: None (occurrence: None)
  Receive Date: 20080217
  Receipt Date: 20080125
  Transmission Date: 20080703
  Serious: No
  Sender: FDA-Public Use
  Company Number: US-BAXTER-2008BH000878

PATIENT
  Age: 45 Year
  Sex: Male
  Weight: 83 kg

DRUGS (9)
  1. HEPARIN SODIUM [Suspect]
     Indication: PERITONEAL DIALYSIS
     Dosage: DOSE UNIT:CUBIC CENTIMETER
     Route: 033
     Dates: start: 20070601
  2. HEPARIN SODIUM [Suspect]
     Dosage: DOSE UNIT:CUBIC CENTIMETER
     Route: 033
     Dates: start: 20070601
  3. ISOSORBIDE DINITRATE [Concomitant]
     Indication: DRUG USE FOR UNKNOWN INDICATION
     Route: 065
  4. PREDNISONE TAB [Concomitant]
     Indication: DRUG USE FOR UNKNOWN INDICATION
     Route: 065
  5. HYDRALAZINE HCL [Concomitant]
     Indication: DRUG USE FOR UNKNOWN INDICATION
     Route: 065
  6. COREG [Concomitant]
     Indication: DRUG USE FOR UNKNOWN INDICATION
     Route: 065
  7. CLONIDINE [Concomitant]
     Indication: DRUG USE FOR UNKNOWN INDICATION
     Route: 065
  8. AMIDRONE [Concomitant]
     Indication: DRUG USE FOR UNKNOWN INDICATION
     Route: 065
  9. LISINOPRIL [Concomitant]
     Indication: DRUG USE FOR UNKNOWN INDICATION
     Dosage: DOSE UNIT:UNKNOWN
     Route: 065

REACTIONS (3)
  - MALAISE [None]
  - NAUSEA [None]
  - STOMACH DISCOMFORT [None]
